FAERS Safety Report 14448375 (Version 1)
Quarter: 2018Q1

REPORT INFORMATION
  Report Type: Spontaneous
  Country: US (occurrence: US)
  Receive Date: 20180126
  Receipt Date: 20180126
  Transmission Date: 20180509
  Serious: Yes (Other)
  Sender: FDA-Public Use
  Company Number: None

PATIENT
  Age: 70 Year
  Sex: Male
  Weight: 61.2 kg

DRUGS (3)
  1. WARFARIN [Suspect]
     Active Substance: WARFARIN
     Indication: DRUG THERAPY
     Route: 048
     Dates: start: 20170101, end: 20180124
  2. CAD MAINTENANCE MEDICATIONS [Concomitant]
  3. OMEGA 3 [Concomitant]
     Active Substance: OMEGA-3 FATTY ACIDS

REACTIONS (3)
  - International normalised ratio decreased [None]
  - Product measured potency issue [None]
  - Therapy non-responder [None]

NARRATIVE: CASE EVENT DATE: 20180109
